FAERS Safety Report 23356960 (Version 1)
Quarter: 2023Q4

REPORT INFORMATION
  Report Type: Spontaneous
  Country: US (occurrence: None)
  Receive Date: 20231229
  Receipt Date: 20231229
  Transmission Date: 20240110
  Serious: Yes (Hospitalization)
  Sender: FDA-Public Use
  Company Number: None

PATIENT
  Sex: Female

DRUGS (3)
  1. AMBRISENTAN [Suspect]
     Active Substance: AMBRISENTAN
     Indication: Pulmonary arterial hypertension
     Dosage: 5MG ONCE DAILY ORAL?
     Route: 048
     Dates: start: 202303
  2. SILDENAFIL [Suspect]
     Active Substance: SILDENAFIL
     Indication: Pulmonary arterial hypertension
     Dosage: 1ML 3 TIMES DAILY ORAL?
     Route: 048
     Dates: start: 202303
  3. SYNAGIS [Concomitant]
     Active Substance: PALIVIZUMAB

REACTIONS (2)
  - Respiratory disorder [None]
  - Gastrointestinal disorder [None]
